FAERS Safety Report 13390730 (Version 1)
Quarter: 2017Q1

REPORT INFORMATION
  Report Type: Spontaneous
  Country: SE (occurrence: SE)
  Receive Date: 20170331
  Receipt Date: 20170331
  Transmission Date: 20170429
  Serious: Yes (Hospitalization)
  Sender: FDA-Public Use
  Company Number: SE-ASTRAZENECA-2017SE31100

PATIENT
  Age: 89 Year
  Sex: Male

DRUGS (14)
  1. ELIQUIS [Suspect]
     Active Substance: APIXABAN
     Indication: ATRIAL FIBRILLATION
     Dosage: UNKNOWN DOSE
     Route: 048
     Dates: start: 20150801
  2. DIGOXIN. [Concomitant]
     Active Substance: DIGOXIN
  3. MINDIAB [Concomitant]
     Active Substance: GLIPIZIDE
  4. SELOKENZOC [Concomitant]
     Active Substance: METOPROLOL SUCCINATE
  5. FURIX [Concomitant]
     Active Substance: FUROSEMIDE
  6. PULMICORT TURBUHALER [Concomitant]
     Active Substance: BUDESONIDE
  7. TROMBYL [Suspect]
     Active Substance: ASPIRIN
     Indication: MYOCARDIAL INFARCTION
     Dosage: UNKNOWN DOSE
     Route: 065
  8. DYMISTA [Concomitant]
     Active Substance: AZELASTINE HYDROCHLORIDE\FLUTICASONE PROPIONATE
  9. IMDUR [Concomitant]
     Active Substance: ISOSORBIDE MONONITRATE
  10. BRILIQUE [Suspect]
     Active Substance: TICAGRELOR
     Indication: MYOCARDIAL INFARCTION
     Dosage: UNKNOWN DOSE
     Route: 048
     Dates: end: 20150818
  11. DAKTACORT [Concomitant]
     Active Substance: HYDROCORTISONE\MICONAZOLE NITRATE
  12. METFORMIN [Concomitant]
     Active Substance: METFORMIN HYDROCHLORIDE
  13. LOSARTAN. [Concomitant]
     Active Substance: LOSARTAN
  14. NITROGLYCERIN RECIP [Concomitant]
     Active Substance: NITROGLYCERIN

REACTIONS (2)
  - Circumstance or information capable of leading to medication error [Recovered/Resolved]
  - Epistaxis [Recovered/Resolved]

NARRATIVE: CASE EVENT DATE: 20150801
